FAERS Safety Report 10911913 (Version 1)
Quarter: 2015Q1

REPORT INFORMATION
  Report Type: Spontaneous
  Country: US (occurrence: None)
  Receive Date: 20150310
  Receipt Date: 20150310
  Transmission Date: 20150721
  Serious: Yes (Other)
  Sender: FDA-Public Use
  Company Number: None

PATIENT
  Age: 11 Year
  Sex: Female
  Weight: 35.38 kg

DRUGS (2)
  1. FLINSTONE VITAMINS [Concomitant]
  2. LANSOPRAZOLE. [Suspect]
     Active Substance: LANSOPRAZOLE
     Indication: GASTROOESOPHAGEAL REFLUX DISEASE
     Route: 048

REACTIONS (4)
  - Erythema nodosum [None]
  - Lethargy [None]
  - Pyrexia [None]
  - Skin ulcer [None]

NARRATIVE: CASE EVENT DATE: 20150101
